FAERS Safety Report 10143088 (Version 1)
Quarter: 2014Q2

REPORT INFORMATION
  Report Type: Spontaneous
  Country: US (occurrence: None)
  Receive Date: 20140429
  Receipt Date: 20140429
  Transmission Date: 20141212
  Serious: No
  Sender: FDA-Public Use
  Company Number: None

PATIENT
  Age: 75 Year
  Sex: Male
  Weight: 97.6 kg

DRUGS (2)
  1. HYDROMORPHONE [Suspect]
     Indication: PAIN
     Route: 042
     Dates: start: 20140404, end: 20140405
  2. GABAPENTIN [Suspect]
     Route: 048
     Dates: start: 20131028

REACTIONS (4)
  - Unresponsive to stimuli [None]
  - Hypoxia [None]
  - Cardio-respiratory arrest [None]
  - Sleep apnoea syndrome [None]
